FAERS Safety Report 6465437-8 (Version None)
Quarter: 2009Q4

REPORT INFORMATION
  Report Type: 
  Country: None (occurrence: None)
  Receive Date: 20091124
  Receipt Date: 20091112
  Transmission Date: 20100525
  Serious: Yes (Hospitalization)
  Sender: FDA-Public Use
  Company Number: CERZ-1001033

PATIENT
  Sex: Male
  Weight: 1.8 kg

DRUGS (1)
  1. CEREZYME [Suspect]
     Indication: DRUG EXPOSURE BEFORE PREGNANCY

REACTIONS (3)
  - CAESAREAN SECTION [None]
  - MATERNAL DRUGS AFFECTING FOETUS [None]
  - NEONATAL RESPIRATORY DISTRESS SYNDROME [None]
